FAERS Safety Report 7044832-2 (Version None)
Quarter: 2010Q4

REPORT INFORMATION
  Report Type: 
  Country: None (occurrence: None)
  Receive Date: 20101014
  Receipt Date: 20101005
  Transmission Date: 20110411
  Serious: Yes (Other)
  Sender: FDA-Public Use
  Company Number: US-JNJFOC-20101001820

PATIENT
  Sex: Female

DRUGS (1)
  1. RISPERDAL CONSTA [Suspect]
     Indication: SCHIZOPHRENIA
     Route: 030

REACTIONS (7)
  - ALOPECIA [None]
  - HAIR COLOUR CHANGES [None]
  - HAIR GROWTH ABNORMAL [None]
  - LIP DISCOLOURATION [None]
  - LIP PAIN [None]
  - LIP SWELLING [None]
  - ONYCHOCLASIS [None]
